FAERS Safety Report 19762825 (Version 6)
Quarter: 2022Q3

REPORT INFORMATION
  Report Type: Report from Study
  Country: DE (occurrence: None)
  Receive Date: 20210830
  Receipt Date: 20220811
  Transmission Date: 20221027
  Serious: Yes (Life-Threatening, Hospitalization, Disabling)
  Sender: FDA-Public Use
  Company Number: DE-ROCHE-2878896

PATIENT
  Age: 42 Year
  Sex: Female
  Weight: 62 kg

DRUGS (4)
  1. ATEZOLIZUMAB [Suspect]
     Active Substance: ATEZOLIZUMAB
     Indication: Triple negative breast cancer
     Dosage: ON 01/JUL/2021, SHE RECEIVED LAST DOSE OF ATEZOLIZUMAB 840 MG PRIOR TO ONSET OF SERIOUS ADVERSE EVEN
     Route: 041
     Dates: start: 20210701
  2. ATEZOLIZUMAB [Suspect]
     Active Substance: ATEZOLIZUMAB
     Dosage: ON 29/JUL/2021, SHE RECEIVED LAST DOSE OF ATEZOLIZUMAB 1200 MG PRIOR TO ONSET OF SERIOUS ADVERSE EVE
     Route: 041
     Dates: start: 20210701
  3. PACLITAXEL [Suspect]
     Active Substance: PACLITAXEL
     Indication: Triple negative breast cancer
     Dosage: DATE OF LAST DOSE OF PACLITAXEL PRIOR TO SAE: 06/AUG/2021
     Route: 042
     Dates: start: 20210729
  4. CARBOPLATIN [Suspect]
     Active Substance: CARBOPLATIN
     Indication: Triple negative breast cancer
     Dosage: DATE OF LAST DOSE OF CARBOPLATIN PRIOR TO SAE: 06/AUG/2021
     Route: 042
     Dates: start: 20210729

REACTIONS (2)
  - Immune-mediated hepatitis [Recovered/Resolved]
  - Hepatotoxicity [Recovered/Resolved]

NARRATIVE: CASE EVENT DATE: 20210722
